FAERS Safety Report 6970479-X (Version None)
Quarter: 2010Q3

REPORT INFORMATION
  Report Type: 
  Country: None (occurrence: None)
  Receive Date: 20100908
  Receipt Date: 20100901
  Transmission Date: 20110219
  Serious: Yes (Other)
  Sender: FDA-Public Use
  Company Number: US-ROCHE-695902

PATIENT
  Sex: Male
  Weight: 74.8 kg

DRUGS (1)
  1. ACCUTANE [Suspect]
     Route: 065
     Dates: start: 19980505, end: 19980901

REACTIONS (5)
  - CROHN'S DISEASE [None]
  - INFLAMMATORY BOWEL DISEASE [None]
  - PYODERMA GANGRENOSUM [None]
  - SMALL INTESTINAL OBSTRUCTION [None]
  - VIRAL INFECTION [None]
